FAERS Safety Report 8764101 (Version 1)
Quarter: 2012Q4

REPORT INFORMATION
  Report Type: 
  Country: FR (occurrence: FR)
  Receive Date: 20120831
  Receipt Date: 20120831
  Transmission Date: 20130627
  Serious: Yes (Hospitalization)
  Sender: FDA-Public Use
  Company Number: FR-ABBOTT-12P-056-0974197-00

PATIENT
  Age: 62 Year
  Sex: Male

DRUGS (3)
  1. DEPAKINE [Suspect]
     Indication: IDIOPATHIC GENERALISED EPILEPSY
     Route: 048
     Dates: start: 2009
  2. APRANAX [Interacting]
     Indication: ARTHRALGIA
     Route: 048
     Dates: start: 20110923, end: 20110923
  3. INEXIUM [Interacting]
     Indication: ANTIINFLAMMATORY THERAPY
     Route: 048
     Dates: start: 20110923, end: 20110923

REACTIONS (2)
  - Status epilepticus [Recovered/Resolved]
  - Drug interaction [Unknown]
